FAERS Safety Report 7225316-5 (Version None)
Quarter: 2011Q1

REPORT INFORMATION
  Report Type: 
  Country: None (occurrence: None)
  Receive Date: 20110113
  Receipt Date: 20110104
  Transmission Date: 20110831
  Serious: Yes (Other)
  Sender: FDA-Public Use
  Company Number: US-PFIZER INC-2011001576

PATIENT
  Sex: Female

DRUGS (1)
  1. CHAPSTICK LIP BALM [Suspect]
     Dosage: UNK

REACTIONS (2)
  - DEPENDENCE [None]
  - OBSESSIVE-COMPULSIVE DISORDER [None]
